FAERS Safety Report 10006222 (Version 1)
Quarter: 2014Q1

REPORT INFORMATION
  Report Type: Spontaneous
  Country: AR (occurrence: AR)
  Receive Date: 20140313
  Receipt Date: 20140313
  Transmission Date: 20141002
  Serious: Yes (Hospitalization, Other)
  Sender: FDA-Public Use
  Company Number: AR-PFIZER INC-2014071265

PATIENT
  Age: 54 Year
  Sex: Male

DRUGS (2)
  1. SUTENT [Suspect]
     Indication: RENAL CANCER
     Dosage: 50 MG, CYCLIC (4WEEKS ON, 2WEEKS OFF SCHEME)
     Dates: start: 2013
  2. SUTENT [Suspect]
     Dosage: 37.5 MG, CYCLIC (4WEEKS ON, 2WEEKS OFF SCHEME)

REACTIONS (3)
  - Abscess [Recovered/Resolved]
  - Necrosis [Recovered/Resolved]
  - Haemorrhage [Unknown]
